FAERS Safety Report 19682357 (Version 1)
Quarter: 2021Q3

REPORT INFORMATION
  Report Type: Spontaneous
  Country: FR (occurrence: FR)
  Receive Date: 20210810
  Receipt Date: 20210810
  Transmission Date: 20211014
  Serious: Yes (Hospitalization)
  Sender: FDA-Public Use
  Company Number: FR-SA-2021SA260833

PATIENT
  Age: 79 Year
  Sex: Male

DRUGS (1)
  1. LOVENOX [Suspect]
     Active Substance: ENOXAPARIN SODIUM
     Indication: PULMONARY EMBOLISM
     Dosage: UNK
     Route: 058
     Dates: start: 20210717, end: 20210720

REACTIONS (1)
  - Rash maculo-papular [Unknown]

NARRATIVE: CASE EVENT DATE: 20210719
